FAERS Safety Report 8424096-5 (Version None)
Quarter: 2012Q2

REPORT INFORMATION
  Report Type: 
  Country: None (occurrence: None)
  Receive Date: 20120608
  Receipt Date: 20110426
  Transmission Date: 20120825
  Serious: No
  Sender: FDA-Public Use
  Company Number: US-ASTRAZENECA-2011SE13631

PATIENT
  Age: 93 Year
  Sex: Female

DRUGS (1)
  1. PULMICORT FLEXHALER [Suspect]
     Indication: ASTHMA
     Dosage: 180 MCG, 2 PUFFS BID
     Route: 055
     Dates: start: 20070101

REACTIONS (2)
  - DRUG INEFFECTIVE [None]
  - DYSPNOEA [None]
